FAERS Safety Report 15368314 (Version 5)
Quarter: 2019Q3

REPORT INFORMATION
  Report Type: Report from Study
  Country: US (occurrence: US)
  Receive Date: 20180910
  Receipt Date: 20190925
  Transmission Date: 20191004
  Serious: Yes (Hospitalization)
  Sender: FDA-Public Use
  Company Number: US-ACTELION-A-US2018-178347

PATIENT
  Age: 61 Year
  Sex: Female

DRUGS (5)
  1. SILDENAFIL. [Concomitant]
     Active Substance: SILDENAFIL
  2. ENBREL [Concomitant]
     Active Substance: ETANERCEPT
  3. OPSUMIT [Suspect]
     Active Substance: MACITENTAN
     Indication: PULMONARY ARTERIAL HYPERTENSION
     Dosage: 10 MG, QD
     Route: 048
     Dates: start: 20180829
  4. METHOTREXATE. [Suspect]
     Active Substance: METHOTREXATE
     Indication: PRODUCT USED FOR UNKNOWN INDICATION
     Route: 065
  5. HUMIRA [Concomitant]
     Active Substance: ADALIMUMAB

REACTIONS (9)
  - Spinal operation [Not Recovered/Not Resolved]
  - Hypersensitivity [Unknown]
  - Post procedural infection [Not Recovered/Not Resolved]
  - Blood count abnormal [Unknown]
  - Product dose omission [Unknown]
  - Unevaluable investigation [Unknown]
  - Surgery [Not Recovered/Not Resolved]
  - Memory impairment [Unknown]
  - Biopsy bone marrow [Unknown]

NARRATIVE: CASE EVENT DATE: 201808
